FAERS Safety Report 9714313 (Version 1)
Quarter: 2013Q4

REPORT INFORMATION
  Report Type: Spontaneous
  Country: SI (occurrence: SI)
  Receive Date: 20131126
  Receipt Date: 20131126
  Transmission Date: 20140711
  Serious: Yes (Other)
  Sender: FDA-Public Use
  Company Number: SI-TEVA-444068ISR

PATIENT
  Age: 54 Year
  Sex: Male

DRUGS (5)
  1. OXALIPLATIN [Suspect]
     Dosage: 180 MG
     Route: 042
     Dates: start: 20131018, end: 20131018
  2. AMLODIPIN 10 MG [Concomitant]
  3. NOLPAZA (INN PANTOPRAZOLE) [Concomitant]
     Dosage: 1X1, OTHER DETAILS UNKNOWN
  4. LEXAURIN (INN BROMAZEPAM) [Concomitant]
     Dosage: TAKE IF NECESSARY
  5. REGLAN (INN METOCLOPRAMIDE) [Concomitant]
     Dosage: TAKE IF NECESSARY

REACTIONS (4)
  - Infusion related reaction [Recovered/Resolved]
  - Hypertension [Recovered/Resolved]
  - Hypertonia [Recovered/Resolved]
  - Back pain [Recovered/Resolved]
